FAERS Safety Report 19172102 (Version 2)
Quarter: 2021Q2

REPORT INFORMATION
  Report Type: Other
  Country: CA (occurrence: CA)
  Receive Date: 20210423
  Receipt Date: 20210618
  Transmission Date: 20210717
  Serious: Yes (Other)
  Sender: FDA-Public Use
  Company Number: CA-APOTEX-2021AP009502

PATIENT
  Age: 67 Year
  Sex: Female

DRUGS (2)
  1. MEPOLIZUMAB [Suspect]
     Active Substance: MEPOLIZUMAB
     Indication: ASTHMA
     Dosage: 100 MILLIGRAM
     Route: 042
  2. ROSUVASTATIN. [Suspect]
     Active Substance: ROSUVASTATIN
     Indication: PRODUCT USED FOR UNKNOWN INDICATION
     Dosage: UNK
     Route: 048

REACTIONS (5)
  - Gastrointestinal disorder [Not Recovered/Not Resolved]
  - Pain in extremity [Not Recovered/Not Resolved]
  - Angina pectoris [Not Recovered/Not Resolved]
  - Abdominal pain [Not Recovered/Not Resolved]
  - Gastroenteritis [Not Recovered/Not Resolved]
